FAERS Safety Report 23979606 (Version 1)
Quarter: 2024Q2

REPORT INFORMATION
  Report Type: Spontaneous
  Country: GB (occurrence: GB)
  Receive Date: 20240616
  Receipt Date: 20240616
  Transmission Date: 20240717
  Serious: Yes (Other)
  Sender: FDA-Public Use
  Company Number: GB-MHRA-MED-202406051559126120-FDRJB

PATIENT
  Age: 22 Year
  Sex: Female
  Weight: 61 kg

DRUGS (3)
  1. CEPHALEXIN [Suspect]
     Active Substance: CEPHALEXIN
     Indication: Urinary tract infection
     Dosage: 500 MILLIGRAM, TWO TIMES A DAY(FOR 3 DAYS)
     Route: 065
     Dates: start: 20240603
  2. NITROFURANTOIN [Concomitant]
     Active Substance: NITROFURANTOIN
     Indication: Urinary tract infection
     Dosage: UNK
     Route: 065
     Dates: start: 20240510, end: 20240513
  3. NITROFURANTOIN [Concomitant]
     Active Substance: NITROFURANTOIN
     Dosage: UNK
     Route: 065
     Dates: start: 20240529

REACTIONS (1)
  - Back pain [Not Recovered/Not Resolved]

NARRATIVE: CASE EVENT DATE: 20240604
